FAERS Safety Report 5238579-2 (Version None)
Quarter: 2007Q1

REPORT INFORMATION
  Report Type: 
  Country: None (occurrence: None)
  Receive Date: 20070214
  Receipt Date: 20070214
  Transmission Date: 20070707
  Serious: Yes (Hospitalization)
  Sender: FDA-Public Use
  Company Number: None

PATIENT
  Age: 88 Year
  Sex: Female
  Weight: 91.6266 kg

DRUGS (9)
  1. WARFARIN SODIUM [Suspect]
     Indication: DEEP VEIN THROMBOSIS
     Dosage: ?  3MG DAILY
  2. ALBUTEROL / IPRATROP [Concomitant]
  3. ASCORBIC ACID [Concomitant]
  4. ASPIRIN [Concomitant]
  5. BREATHERITE SYSTEM [Concomitant]
  6. DONEPEZIL HCL [Concomitant]
  7. FUROSEMIDE [Concomitant]
  8. LEVALBUTEROL TART [Concomitant]
  9. MULTI-VITAMIN [Concomitant]

REACTIONS (2)
  - ANAEMIA [None]
  - GASTROINTESTINAL HAEMORRHAGE [None]
